FAERS Safety Report 9767859 (Version 3)
Quarter: 2014Q1

REPORT INFORMATION
  Report Type: Spontaneous
  Country: US (occurrence: US)
  Receive Date: 20131217
  Receipt Date: 20140130
  Transmission Date: 20141002
  Serious: No
  Sender: FDA-Public Use
  Company Number: US-PFIZER INC-2013356554

PATIENT
  Age: 27 Year
  Sex: Male

DRUGS (9)
  1. ENBREL [Suspect]
     Indication: RHEUMATOID ARTHRITIS
     Dosage: 50 MG, WEEKLY TOOK ONLY 1 DOSE
     Route: 058
  2. ENBREL [Suspect]
     Indication: ANKYLOSING SPONDYLITIS
  3. XELJANZ [Suspect]
     Indication: RHEUMATOID ARTHRITIS
     Dosage: 5 MG, 2X/DAY  (TOOK  TWO TABLETS ONLY)
     Dates: start: 20130816, end: 20131001
  4. XELJANZ [Suspect]
     Indication: ANKYLOSING SPONDYLITIS
  5. HUMIRA [Suspect]
     Indication: RHEUMATOID ARTHRITIS
     Dosage: 40 MG, (TOOK ONLY 1 DOSE)
     Route: 058
  6. HUMIRA [Suspect]
     Indication: ANKYLOSING SPONDYLITIS
  7. MTX [Concomitant]
     Dosage: UNK
  8. SULFASALAZINE [Concomitant]
     Dosage: UNK
  9. ARAVA [Concomitant]
     Dosage: UNK

REACTIONS (2)
  - Drug intolerance [Unknown]
  - Neuropathy peripheral [Recovered/Resolved]
